FAERS Safety Report 8831519 (Version 1)
Quarter: 2012Q4

REPORT INFORMATION
  Report Type: 
  Country: US (occurrence: US)
  Receive Date: 20121009
  Receipt Date: 20121009
  Transmission Date: 20130627
  Serious: No
  Sender: FDA-Public Use
  Company Number: US-ASTRAZENECA-2012SE76204

PATIENT
  Age: 45 Year
  Sex: Female
  Weight: 68 kg

DRUGS (5)
  1. ZOMIG [Suspect]
     Indication: MIGRAINE
     Dosage: ZOMIG ZMT
     Route: 048
     Dates: start: 201204, end: 201209
  2. ZOMIG [Suspect]
     Indication: MIGRAINE
     Route: 048
     Dates: start: 201209, end: 201209
  3. ZOMIG [Suspect]
     Indication: MIGRAINE
     Route: 045
  4. BIRTH CONTROL PILLS [Concomitant]
  5. GABAPENTIN [Concomitant]
     Indication: NEUROPATHY PERIPHERAL

REACTIONS (4)
  - Erythema [Recovered/Resolved]
  - Burning sensation mucosal [Unknown]
  - Burning sensation [Recovered/Resolved]
  - Drug ineffective [Unknown]
